FAERS Safety Report 5740836-8 (Version None)
Quarter: 2008Q2

REPORT INFORMATION
  Report Type: 
  Country: None (occurrence: None)
  Receive Date: 20080516
  Receipt Date: 20080505
  Transmission Date: 20081010
  Serious: Yes (Other)
  Sender: FDA-Public Use
  Company Number: US-PFIZER INC-2008007245

PATIENT
  Sex: Female
  Weight: 76.2 kg

DRUGS (7)
  1. AROMASIN [Suspect]
     Indication: BREAST CANCER
     Route: 048
  2. LORTAB [Concomitant]
  3. XANAX [Concomitant]
  4. PROZAC [Concomitant]
  5. AMBIEN [Concomitant]
     Dosage: FREQ:AS NEEDED
  6. SOMA [Concomitant]
  7. FLEXERIL [Concomitant]
     Dosage: FREQ:AS NEEDED

REACTIONS (1)
  - OSTEONECROSIS [None]
